FAERS Safety Report 4600220-7 (Version None)
Quarter: 2005Q1

REPORT INFORMATION
  Report Type: 
  Country: None (occurrence: None)
  Receive Date: 20050303
  Receipt Date: 20050222
  Transmission Date: 20050727
  Serious: No
  Sender: FDA-Public Use
  Company Number: CA-2004-034948

PATIENT
  Age: 41 Year
  Sex: Male

DRUGS (1)
  1. BETASERON [Suspect]
     Indication: MULTIPLE SCLEROSIS
     Dosage: 8 MIU, EVERY 2D, SUBCUTANEOUS
     Route: 058
     Dates: start: 19980609

REACTIONS (8)
  - BLINDNESS TRANSIENT [None]
  - BLINDNESS UNILATERAL [None]
  - CONDITION AGGRAVATED [None]
  - DEPRESSION [None]
  - INFECTION [None]
  - MULTIPLE SCLEROSIS [None]
  - PSYCHIATRIC SYMPTOM [None]
  - VISION BLURRED [None]
